FAERS Safety Report 4341654-8 (Version None)
Quarter: 2004Q2

REPORT INFORMATION
  Report Type: 
  Country: None (occurrence: None)
  Receive Date: 20040420
  Receipt Date: 20040408
  Transmission Date: 20050107
  Serious: Yes (Hospitalization)
  Sender: FDA-Public Use
  Company Number: FR-BRISTOL-MYERS SQUIBB COMPANY-12556254

PATIENT
  Age: 2 Month
  Sex: Male
  Weight: 6 kg

DRUGS (2)
  1. MUCOMYST [Suspect]
     Indication: COUGH
     Dosage: 100 MG/5 ML POWDER FOR ORAL SUSPENSION
     Route: 048
     Dates: end: 20040121
  2. AMOXICILLIN [Concomitant]
     Indication: COUGH
     Dates: start: 20040121

REACTIONS (2)
  - BRONCHIOLITIS [None]
  - DYSPNOEA [None]
